FAERS Safety Report 6833406-1 (Version None)
Quarter: 2010Q3

REPORT INFORMATION
  Report Type: 
  Country: None (occurrence: None)
  Receive Date: 20100712
  Receipt Date: 20070416
  Transmission Date: 20110219
  Serious: No
  Sender: FDA-Public Use
  Company Number: US-PFIZER INC-2007022886

PATIENT
  Sex: Male
  Weight: 83.91 kg

DRUGS (6)
  1. VARENICLINE [Suspect]
     Indication: SMOKING CESSATION THERAPY
     Route: 048
     Dates: start: 20070228
  2. FENTANYL [Concomitant]
     Indication: PAIN
     Route: 061
  3. ENALAPRIL MALEATE [Concomitant]
     Route: 048
  4. CRESTOR [Concomitant]
     Route: 048
  5. ACETYLSALICYLIC ACID [Concomitant]
     Route: 048
  6. ALEVE (CAPLET) [Concomitant]
     Route: 048

REACTIONS (2)
  - FATIGUE [None]
  - NAUSEA [None]
